FAERS Safety Report 9205761 (Version 1)
Quarter: 2013Q2

REPORT INFORMATION
  Report Type: Spontaneous
  Country: US (occurrence: None)
  Receive Date: 20130401
  Receipt Date: 20130401
  Transmission Date: 20140414
  Serious: Yes (Hospitalization, Other)
  Sender: FDA-Public Use
  Company Number: TPA2013A02380

PATIENT
  Age: 38 Year
  Sex: Female
  Weight: 71.22 kg

DRUGS (14)
  1. PREVACID [Suspect]
     Indication: DYSPEPSIA
     Route: 048
     Dates: start: 1988
  2. TOPAMAX [Concomitant]
  3. EFFEXOR XR [Concomitant]
  4. PREMARIN [Concomitant]
  5. ACCOLATE [Concomitant]
  6. LEVOTHYROXINE [Concomitant]
  7. ZOLPIDEM [Concomitant]
  8. BUSPAR [Concomitant]
  9. CARAFATE [Concomitant]
  10. METHYLPHENIDATE [Concomitant]
  11. SPIRIVA [Concomitant]
  12. MELOXICAM [Concomitant]
  13. PROAIR [Concomitant]
  14. ADVAIR [Concomitant]

REACTIONS (5)
  - Peptic ulcer haemorrhage [None]
  - Off label use [None]
  - Drug ineffective [None]
  - Pneumonia [None]
  - Chronic obstructive pulmonary disease [None]
